FAERS Safety Report 7476834-6 (Version None)
Quarter: 2011Q2

REPORT INFORMATION
  Report Type: 
  Country: None (occurrence: None)
  Receive Date: 20110512
  Receipt Date: 20110307
  Transmission Date: 20111010
  Serious: Yes (Death, Other)
  Sender: FDA-Public Use
  Company Number: PHHY2011IL29853

PATIENT
  Age: 29 Year
  Sex: Male

DRUGS (5)
  1. BENZODIAZEPINES [Concomitant]
  2. ETUMINE [Concomitant]
  3. CLOPIXOL [Concomitant]
  4. CLOZAPINE [Suspect]
     Indication: SCHIZOPHRENIA, PARANOID TYPE
  5. CLONEX [Concomitant]

REACTIONS (9)
  - CARDIAC ARREST [None]
  - ACUTE ABDOMEN [None]
  - ABDOMINAL PAIN UPPER [None]
  - ABDOMINAL COMPARTMENT SYNDROME [None]
  - COLITIS ISCHAEMIC [None]
  - CONSTIPATION [None]
  - GASTROINTESTINAL NECROSIS [None]
  - HYPOTENSION [None]
  - DEATH [None]
